FAERS Safety Report 4518458-6 (Version None)
Quarter: 2004Q4

REPORT INFORMATION
  Report Type: 
  Country: None (occurrence: None)
  Receive Date: 20041202
  Receipt Date: 20041124
  Transmission Date: 20050328
  Serious: Yes (Hospitalization)
  Sender: FDA-Public Use
  Company Number: 2004-05011

PATIENT
  Age: 47 Year
  Sex: Male

DRUGS (2)
  1. CLONIDINE [Suspect]
     Indication: NERVE BLOCK
     Dosage: 30 MCG SINGLE, INTRAVENOUS
     Route: 042
     Dates: start: 20040801, end: 20040801
  2. LIDOCAINE HCL [Suspect]
     Indication: NERVE BLOCK
     Dosage: 150 MG SINGLE, INTRAVENOUS
     Route: 042
     Dates: start: 20040801, end: 20040801

REACTIONS (2)
  - COMPLEX PARTIAL SEIZURES [None]
  - DRUG INTERACTION POTENTIATION [None]
